FAERS Safety Report 17528298 (Version 1)
Quarter: 2020Q1

REPORT INFORMATION
  Report Type: Spontaneous
  Country: US (occurrence: US)
  Receive Date: 20200311
  Receipt Date: 20200311
  Transmission Date: 20200409
  Serious: Yes (Hospitalization, Other)
  Sender: FDA-Public Use
  Company Number: US-MYLANLABS-2020M1025757

PATIENT
  Age: 83 Year
  Sex: Male
  Weight: 75 kg

DRUGS (3)
  1. TYLENOL EXTRA STRENGTH [Concomitant]
     Active Substance: ACETAMINOPHEN
     Dosage: UNK
  2. NAMENDA [Concomitant]
     Active Substance: MEMANTINE HYDROCHLORIDE
     Indication: WOUND
     Dosage: UNK
  3. RIVASTIGMINE TRANSDERMAL SYSTEM [Suspect]
     Active Substance: RIVASTIGMINE
     Indication: DEMENTIA
     Dosage: DAILY
     Route: 062

REACTIONS (36)
  - Neck pain [Recovered/Resolved]
  - Renal cyst [Not Recovered/Not Resolved]
  - Asthenia [Not Recovered/Not Resolved]
  - Hypotension [Not Recovered/Not Resolved]
  - Movement disorder [Recovered/Resolved]
  - Mass [Not Recovered/Not Resolved]
  - Wound haemorrhage [Recovered/Resolved]
  - Product dose omission [Recovered/Resolved]
  - Fall [Recovered/Resolved]
  - Injury [Not Recovered/Not Resolved]
  - Off label use [Not Recovered/Not Resolved]
  - Abnormal behaviour [Not Recovered/Not Resolved]
  - Balance disorder [Not Recovered/Not Resolved]
  - Spinal stenosis [Not Recovered/Not Resolved]
  - Muscle twitching [Not Recovered/Not Resolved]
  - Pain in extremity [Recovered/Resolved]
  - Bladder disorder [Not Recovered/Not Resolved]
  - Chest injury [Recovered/Resolved]
  - Poisoning [Recovered/Resolved]
  - Lethargy [Not Recovered/Not Resolved]
  - Dysarthria [Recovered/Resolved]
  - Wound [Not Recovered/Not Resolved]
  - Chest pain [Recovered/Resolved]
  - Back injury [Recovered/Resolved]
  - Limb crushing injury [Recovered/Resolved]
  - Soft tissue necrosis [Recovered/Resolved]
  - Epilepsy [Not Recovered/Not Resolved]
  - Coordination abnormal [Not Recovered/Not Resolved]
  - Contusion [Not Recovered/Not Resolved]
  - Intervertebral disc disorder [Not Recovered/Not Resolved]
  - Ligament sprain [Not Recovered/Not Resolved]
  - Feeling abnormal [Not Recovered/Not Resolved]
  - Seizure [Recovered/Resolved]
  - Withdrawal syndrome [Recovered/Resolved]
  - Weight decreased [Not Recovered/Not Resolved]
  - Scoliosis [Not Recovered/Not Resolved]

NARRATIVE: CASE EVENT DATE: 201907
